FAERS Safety Report 7531259-X (Version None)
Quarter: 2011Q2

REPORT INFORMATION
  Report Type: 
  Country: None (occurrence: None)
  Receive Date: 20110608
  Receipt Date: 20110526
  Transmission Date: 20111010
  Serious: Yes (Hospitalization)
  Sender: FDA-Public Use
  Company Number: US-BAYER-201034731NA

PATIENT
  Age: 23 Year
  Sex: Female
  Weight: 104 kg

DRUGS (8)
  1. YAZ [Suspect]
     Indication: PRODUCT USED FOR UNKNOWN INDICATION
     Dosage: UNK
     Dates: start: 20050101, end: 20080101
  2. YASMIN [Suspect]
     Indication: PRODUCT USED FOR UNKNOWN INDICATION
     Dosage: UNK
     Dates: start: 20050101, end: 20080101
  3. DROSPIRENONE AND ETHINYL ESTRADIOL [Suspect]
  4. ADVIL LIQUI-GELS [Concomitant]
  5. METFORMIN HCL [Concomitant]
  6. LAMICTAL [Concomitant]
  7. ASCORBIC ACID [Concomitant]
  8. PAXIL [Concomitant]

REACTIONS (3)
  - GALLBLADDER DISORDER [None]
  - CHOLECYSTITIS CHRONIC [None]
  - CHOLELITHIASIS [None]
